FAERS Safety Report 8506754-7 (Version None)
Quarter: 2012Q3

REPORT INFORMATION
  Report Type: 
  Country: None (occurrence: None)
  Receive Date: 20120712
  Receipt Date: 20120709
  Transmission Date: 20120928
  Serious: No
  Sender: FDA-Public Use
  Company Number: US-PFIZER INC-2012164369

PATIENT
  Sex: Female
  Weight: 49.887 kg

DRUGS (2)
  1. LYRICA [Concomitant]
     Indication: FIBROMYALGIA
     Dosage: UNK
  2. PRISTIQ [Suspect]
     Indication: DEPRESSION
     Dosage: 50 MG, 1X/DAY
     Route: 048
     Dates: end: 20120702

REACTIONS (7)
  - NAUSEA [None]
  - IMPAIRED DRIVING ABILITY [None]
  - BEDRIDDEN [None]
  - ANXIETY [None]
  - VERTIGO [None]
  - DIZZINESS [None]
  - WITHDRAWAL SYNDROME [None]
